FAERS Safety Report 21171440 (Version 1)
Quarter: 2022Q3

REPORT INFORMATION
  Report Type: Spontaneous
  Country: NL (occurrence: NL)
  Receive Date: 20220804
  Receipt Date: 20220804
  Transmission Date: 20221026
  Serious: Yes (Other)
  Sender: FDA-Public Use
  Company Number: None

PATIENT
  Sex: Female
  Weight: 59.8 kg

DRUGS (2)
  1. OLANZAPINE [Suspect]
     Active Substance: OLANZAPINE
     Indication: Affective disorder
     Dosage: 1 DD , FORM STRENGTH :  5MG / BRAND NAME NOT SPECIFIED , THERAPY END DATE : ASKU , UNIT DOSE : 5MG ,
     Dates: start: 20220705
  2. OLANZAPINE [Suspect]
     Active Substance: OLANZAPINE
     Indication: Agitation

REACTIONS (1)
  - Hallucination, visual [Recovering/Resolving]
